FAERS Safety Report 6475640-9 (Version None)
Quarter: 2009Q4

REPORT INFORMATION
  Report Type: 
  Country: None (occurrence: None)
  Receive Date: 20091204
  Receipt Date: 20091126
  Transmission Date: 20100525
  Serious: Yes (Hospitalization)
  Sender: FDA-Public Use
  Company Number: MA-PFIZER INC-2009300837

PATIENT
  Age: 70 Year
  Sex: Female

DRUGS (4)
  1. LYRICA [Suspect]
     Indication: NEURALGIA
     Dosage: 75 MG, 2X/DAY
     Route: 048
  2. CODOLIPRANE [Concomitant]
  3. FENAC [Concomitant]
  4. MEGAFLOX [Concomitant]

REACTIONS (1)
  - MOBILITY DECREASED [None]
